FAERS Safety Report 12600891 (Version 3)
Quarter: 2016Q3

REPORT INFORMATION
  Report Type: Report from Study
  Country: CA (occurrence: CA)
  Receive Date: 20160727
  Receipt Date: 20160929
  Transmission Date: 20161109
  Serious: Yes (Hospitalization)
  Sender: FDA-Public Use
  Company Number: CA-AMGEN-CANSL2016095850

PATIENT
  Age: 49 Year
  Sex: Female

DRUGS (5)
  1. METHOTREXATE. [Concomitant]
     Active Substance: METHOTREXATE
     Dosage: 25 MG, QWK
     Route: 058
     Dates: start: 2015
  2. PLAQUENIL [Concomitant]
     Active Substance: HYDROXYCHLOROQUINE SULFATE
     Dosage: 400 MG, QD
     Dates: start: 2015
  3. FOLIC ACID. [Concomitant]
     Active Substance: FOLIC ACID
     Dosage: 1 MG, QD
  4. ENBREL [Suspect]
     Active Substance: ETANERCEPT
     Indication: RHEUMATOID ARTHRITIS
     Dosage: 50 MG, QWK
     Route: 058
     Dates: start: 20160201
  5. SULFASALAZINE. [Concomitant]
     Active Substance: SULFASALAZINE
     Dosage: 1000 MG, BID
     Dates: start: 2015

REACTIONS (8)
  - Muscle spasms [Unknown]
  - Lip swelling [Recovering/Resolving]
  - Raynaud^s phenomenon [Unknown]
  - Dysphagia [Recovering/Resolving]
  - Tenderness [Unknown]
  - Swollen tongue [Recovering/Resolving]
  - Pain in extremity [Unknown]
  - Compression fracture [Unknown]

NARRATIVE: CASE EVENT DATE: 2016
